FAERS Safety Report 24543807 (Version 1)
Quarter: 2024Q4

REPORT INFORMATION
  Report Type: Spontaneous
  Country: US (occurrence: US)
  Receive Date: 20241024
  Receipt Date: 20241024
  Transmission Date: 20250114
  Serious: Yes (Life-Threatening, Hospitalization, Other)
  Sender: AUROBINDO
  Company Number: US-MLMSERVICE-20241002-PI214910-00305-1

PATIENT
  Age: 52 Year
  Sex: Female

DRUGS (6)
  1. SUMATRIPTAN [Suspect]
     Active Substance: SUMATRIPTAN
     Indication: Migraine
     Dosage: 100 MILLIGRAM THAT MORNING
     Route: 048
  2. BUPIVACAINE [Concomitant]
     Active Substance: BUPIVACAINE
     Indication: Postoperative analgesia
     Dosage: 6 MILLILITER 1 TOTAL (A TOTAL OF 3 ML OF 2% LIDOCAINE AND 6 ML OF 0.5% BUPIVACAINE WERE UTILIZED FOR
     Route: 065
  3. LIDOCAINE [Concomitant]
     Active Substance: LIDOCAINE
     Indication: Perioperative analgesia
     Dosage: 3 MILLILITER 1 TOTAL A TOTAL OF 3 ML OF 2% LIDOCAINE AND 6 ML OF 0.5% BUPIVACAINE WERE UTILIZED FOR
     Route: 065
  4. CLONAZEPAM [Concomitant]
     Active Substance: CLONAZEPAM
     Indication: Panic attack
     Dosage: UNK
     Route: 065
  5. CLONAZEPAM [Concomitant]
     Active Substance: CLONAZEPAM
     Indication: Anxiety
  6. DIAZEPAM [Concomitant]
     Active Substance: DIAZEPAM
     Indication: Panic attack
     Dosage: UNK
     Route: 065

REACTIONS (3)
  - Acute myocardial infarction [Recovered/Resolved]
  - Hypertensive emergency [Unknown]
  - Vasospasm [Unknown]
